FAERS Safety Report 8179856-5 (Version None)
Quarter: 2012Q1

REPORT INFORMATION
  Report Type: 
  Country: None (occurrence: None)
  Receive Date: 20120229
  Receipt Date: 20120229
  Transmission Date: 20120608
  Serious: Yes (Hospitalization)
  Sender: FDA-Public Use
  Company Number: None

PATIENT
  Age: 62 Year
  Sex: Male
  Weight: 107.9 kg

DRUGS (1)
  1. WARFARIN SODIUM [Suspect]
     Indication: ATRIAL FIBRILLATION
     Dosage: 6 MG EVERY DAY PO
     Route: 048
     Dates: start: 20111017, end: 20120128

REACTIONS (4)
  - DERMATITIS [None]
  - INTERNATIONAL NORMALISED RATIO INCREASED [None]
  - CELLULITIS [None]
  - BLISTER [None]
